FAERS Safety Report 8459506-0 (Version None)
Quarter: 2012Q2

REPORT INFORMATION
  Report Type: 
  Country: None (occurrence: None)
  Receive Date: 20120622
  Receipt Date: 20120611
  Transmission Date: 20120825
  Serious: Yes (Hospitalization, Other)
  Sender: FDA-Public Use
  Company Number: US-ELI_LILLY_AND_COMPANY-US201107001434

PATIENT
  Sex: Female
  Weight: 39 kg

DRUGS (23)
  1. NEURONTIN [Concomitant]
     Indication: HEADACHE
     Dosage: UNK, QD
  2. CLONAZEPAM [Concomitant]
     Dosage: UNK, EACH EVENING
  3. FORTEO [Suspect]
     Dosage: 20 UG, QD
     Route: 058
  4. CALCIUM [Concomitant]
  5. CHLORAZEPAM [Concomitant]
  6. FORTEO [Suspect]
     Indication: OSTEOPOROSIS
     Dosage: 20 UG, QD
     Route: 058
     Dates: start: 20110620
  7. FORTEO [Suspect]
     Dosage: 20 UG, QD
     Route: 058
  8. LORAZEPAM [Concomitant]
  9. PERCOCET [Concomitant]
     Dosage: UNK, PRN
  10. FORTEO [Suspect]
     Dosage: 20 UG, QD
     Route: 058
  11. FIORICET [Concomitant]
  12. VITAMIN D [Concomitant]
  13. FORTEO [Suspect]
     Dosage: 20 UG, QD
     Route: 058
  14. FORTEO [Suspect]
     Dosage: 20 UG, QD
     Route: 058
  15. FORTEO [Suspect]
     Dosage: 20 UG, QD
     Route: 058
  16. ZANTAC [Concomitant]
  17. M.V.I. [Concomitant]
  18. FORTEO [Suspect]
     Dosage: 20 UG, QD
  19. TYLENOL                                 /SCH/ [Concomitant]
     Dosage: UNK, QD
  20. FORTEO [Suspect]
     Dosage: 20 UG, QD
     Route: 058
  21. FORTEO [Suspect]
     Dosage: 20 UG, QD
     Route: 058
  22. DEPAKOTE [Concomitant]
  23. SUMATRIPTAN [Concomitant]

REACTIONS (28)
  - BILE DUCT OBSTRUCTION [None]
  - BIPOLAR DISORDER [None]
  - CONTUSION [None]
  - POOR QUALITY SLEEP [None]
  - INTESTINAL OBSTRUCTION [None]
  - NERVOUS SYSTEM DISORDER [None]
  - HYPOKINESIA [None]
  - URETHRAL PAIN [None]
  - PNEUMONIA [None]
  - OVERDOSE [None]
  - ASTHENIA [None]
  - ANAEMIA [None]
  - MALAISE [None]
  - CONSTIPATION [None]
  - BLADDER PAIN [None]
  - FATIGUE [None]
  - LIMB INJURY [None]
  - INJECTION SITE HAEMATOMA [None]
  - FEELING ABNORMAL [None]
  - CYSTITIS [None]
  - PARANOIA [None]
  - SNEEZING [None]
  - NASOPHARYNGITIS [None]
  - HEADACHE [None]
  - DIARRHOEA [None]
  - DRUG DOSE OMISSION [None]
  - BLOOD CALCIUM INCREASED [None]
  - ABDOMINAL DISCOMFORT [None]
